FAERS Safety Report 23884022 (Version 1)
Quarter: 2024Q2

REPORT INFORMATION
  Report Type: Spontaneous
  Country: US (occurrence: None)
  Receive Date: 20240521
  Receipt Date: 20240521
  Transmission Date: 20240715
  Serious: Yes (Hospitalization)
  Sender: FDA-Public Use
  Company Number: None

PATIENT
  Sex: Female

DRUGS (6)
  1. TADALAFIL [Suspect]
     Active Substance: TADALAFIL
     Indication: Pulmonary arterial hypertension
     Dosage: FREQUENCY : DAILY;?
     Route: 048
     Dates: start: 202302
  2. DEVICE [Concomitant]
     Active Substance: DEVICE
  3. SODIUM CHLORIDE [Concomitant]
     Active Substance: SODIUM CHLORIDE
  4. VELETRI SDV [Concomitant]
  5. OPSUMIT [Concomitant]
     Active Substance: MACITENTAN
  6. WINREVAIR SDV [Concomitant]

REACTIONS (2)
  - Haemorrhage [None]
  - Gastrointestinal procedural complication [None]
